FAERS Safety Report 7124456-9 (Version None)
Quarter: 2010Q4

REPORT INFORMATION
  Report Type: 
  Country: None (occurrence: None)
  Receive Date: 20101126
  Receipt Date: 20101116
  Transmission Date: 20110411
  Serious: Yes (Hospitalization, Other)
  Sender: FDA-Public Use
  Company Number: PHHO2010DE16048

PATIENT
  Sex: Female
  Weight: 71 kg

DRUGS (5)
  1. AFINITOR [Suspect]
     Indication: TUBEROUS SCLEROSIS
     Dosage: UNK
     Route: 048
     Dates: start: 20100914, end: 20101018
  2. AFINITOR [Suspect]
     Dosage: UNK
     Dates: start: 20101109
  3. OLMESARTAN MEDOXOMIL [Concomitant]
     Indication: HYPERTENSION
  4. OPIPRAMOL [Concomitant]
     Indication: DEPRESSION
  5. DEPO-CLINOVIR [Concomitant]
     Indication: MENORRHAGIA

REACTIONS (10)
  - ABDOMINAL PAIN UPPER [None]
  - BILE DUCT STENOSIS [None]
  - BILE DUCT STENT INSERTION [None]
  - CHOLESTASIS [None]
  - DISEASE PROGRESSION [None]
  - DUODENAL SPHINCTEROTOMY [None]
  - DYSPLASIA [None]
  - FAECES DISCOLOURED [None]
  - GASTRITIS [None]
  - HEPATIC ENZYME INCREASED [None]
